FAERS Safety Report 10695799 (Version 1)
Quarter: 2015Q1

REPORT INFORMATION
  Report Type: Spontaneous
  Country: US (occurrence: None)
  Receive Date: 20150106
  Receipt Date: 20150106
  Transmission Date: 20150721
  Serious: Yes (Disabling)
  Sender: FDA-Public Use
  Company Number: None

PATIENT
  Age: 52 Year
  Sex: Female
  Weight: 72.58 kg

DRUGS (4)
  1. GABAPENTIN. [Suspect]
     Active Substance: GABAPENTIN
     Indication: SCIATICA
     Dosage: 600MG/1 CAPSULE, TWICE DAILY, TAKEN BY MOUTH
     Route: 048
     Dates: start: 20130305, end: 20140905
  2. GABAPENTIN. [Suspect]
     Active Substance: GABAPENTIN
     Indication: OFF LABEL USE
     Dosage: 600MG/1 CAPSULE, TWICE DAILY, TAKEN BY MOUTH
     Route: 048
     Dates: start: 20130305, end: 20140905
  3. GABAPENTIN. [Suspect]
     Active Substance: GABAPENTIN
     Indication: PAIN MANAGEMENT
     Dosage: 600MG/1 CAPSULE, TWICE DAILY, TAKEN BY MOUTH
     Route: 048
     Dates: start: 20130305, end: 20140905
  4. GABAPENTIN. [Suspect]
     Active Substance: GABAPENTIN
     Indication: MUSCULOSKELETAL DISCOMFORT
     Dosage: 600MG/1 CAPSULE, TWICE DAILY, TAKEN BY MOUTH
     Route: 048
     Dates: start: 20130305, end: 20140905

REACTIONS (9)
  - Osteogenesis imperfecta [None]
  - Tooth disorder [None]
  - Foot fracture [None]
  - Impaired healing [None]
  - Anger [None]
  - Bone density decreased [None]
  - Off label use [None]
  - Hypersensitivity [None]
  - Depressed mood [None]

NARRATIVE: CASE EVENT DATE: 20140108
